FAERS Safety Report 5110049-1 (Version None)
Quarter: 2006Q3

REPORT INFORMATION
  Report Type: 
  Country: None (occurrence: None)
  Receive Date: 20060731
  Receipt Date: 20060403
  Transmission Date: 20061208
  Serious: No
  Sender: FDA-Public Use
  Company Number: 2006PV011427

PATIENT
  Age: 71 Year
  Sex: Male
  Weight: 92.307 kg

DRUGS (8)
  1. BYETTA [Suspect]
     Indication: DIABETES MELLITUS NON-INSULIN-DEPENDENT
     Dosage: SEE IMAGE
     Route: 058
     Dates: start: 20060328, end: 20060427
  2. BYETTA [Suspect]
     Indication: DIABETES MELLITUS NON-INSULIN-DEPENDENT
     Dosage: SEE IMAGE
     Route: 058
     Dates: start: 20060428
  3. LANTUS [Concomitant]
  4. GLIPIZIDE [Concomitant]
  5. LASIX [Concomitant]
  6. ZAROXOLYN [Concomitant]
  7. HUMULIN 70/30 [Concomitant]
  8. METFORMIN HCL [Concomitant]

REACTIONS (8)
  - CONDITION AGGRAVATED [None]
  - DYSPEPSIA [None]
  - ERUCTATION [None]
  - FLUID RETENTION [None]
  - HEADACHE [None]
  - MUSCULOSKELETAL DISCOMFORT [None]
  - SWELLING [None]
  - WEIGHT INCREASED [None]
